FAERS Safety Report 11350384 (Version 1)
Quarter: 2015Q3

REPORT INFORMATION
  Report Type: Spontaneous
  Country: FR (occurrence: FR)
  Receive Date: 20150807
  Receipt Date: 20150807
  Transmission Date: 20151125
  Serious: Yes (Hospitalization)
  Sender: FDA-Public Use
  Company Number: FR-TEVA-583137ISR

PATIENT
  Age: 2 Year
  Sex: Female
  Weight: 13.6 kg

DRUGS (5)
  1. CARBOPLATINE KABI [Suspect]
     Active Substance: CARBOPLATIN
     Indication: RETINOBLASTOMA
     Dosage: 340 MILLIGRAM DAILY; DAY 1 OF 3RD COURSE OF CHEMOTHERAPY
     Route: 042
     Dates: start: 20150610, end: 20150610
  2. ETOPOPHOS [Suspect]
     Active Substance: ETOPOSIDE PHOSPHATE
     Indication: RETINOBLASTOMA
     Dosage: 13 MILLIGRAM DAILY; DAY 1 OF 3RD COURSE OF CHEMOTHERAPY, 170 MG PRESCRIBED
     Route: 042
     Dates: start: 20150610, end: 20150610
  3. ONDANSETRON ACCORD [Suspect]
     Active Substance: ONDANSETRON
     Indication: ANTIEMETIC SUPPORTIVE CARE
     Route: 042
     Dates: start: 20150610, end: 20150610
  4. PLITICAN [Suspect]
     Active Substance: ALIZAPRIDE HYDROCHLORIDE
     Indication: ANTIEMETIC SUPPORTIVE CARE
     Dosage: 25 MILLIGRAM DAILY;
     Route: 042
     Dates: start: 20150610, end: 20150610
  5. VINCRISTINE TEVA [Suspect]
     Active Substance: VINCRISTINE
     Indication: RETINOBLASTOMA
     Dosage: .85 MILLIGRAM DAILY; DAY 1 OF 3RD COURSE OF CHEMOTHERAPY
     Route: 042
     Dates: start: 20150610, end: 20150610

REACTIONS (7)
  - Peripheral coldness [Recovered/Resolved]
  - Livedo reticularis [Recovered/Resolved]
  - Pyrexia [Recovered/Resolved]
  - Erythema [Recovered/Resolved]
  - Vomiting [Recovered/Resolved]
  - Chills [Recovered/Resolved]
  - Anaphylactoid reaction [Recovered/Resolved]

NARRATIVE: CASE EVENT DATE: 20150610
